FAERS Safety Report 12071010 (Version 1)
Quarter: 2016Q1

REPORT INFORMATION
  Report Type: Spontaneous
  Country: US (occurrence: US)
  Receive Date: 20160211
  Receipt Date: 20160211
  Transmission Date: 20160526
  Serious: Yes (Other)
  Sender: FDA-Public Use
  Company Number: US-PFIZER INC-2016077732

PATIENT
  Age: 43 Year
  Sex: Female
  Weight: 107 kg

DRUGS (1)
  1. VIAGRA [Suspect]
     Active Substance: SILDENAFIL CITRATE
     Dosage: UNK
     Dates: start: 20160207

REACTIONS (5)
  - Feeling abnormal [Unknown]
  - Hyperaesthesia [Not Recovered/Not Resolved]
  - Product use issue [Unknown]
  - Enlarged clitoris [Not Recovered/Not Resolved]
  - Clitoral engorgement [Not Recovered/Not Resolved]

NARRATIVE: CASE EVENT DATE: 201602
